FAERS Safety Report 7034709-0 (Version None)
Quarter: 2010Q4

REPORT INFORMATION
  Report Type: 
  Country: None (occurrence: None)
  Receive Date: 20101008
  Receipt Date: 20100930
  Transmission Date: 20110411
  Serious: Yes (Hospitalization)
  Sender: FDA-Public Use
  Company Number: CH-JNJFOC-20100908707

PATIENT
  Age: 52 Year
  Sex: Female

DRUGS (6)
  1. TOPAMAX [Suspect]
     Indication: PRODUCT USED FOR UNKNOWN INDICATION
     Dosage: DURATION OF USE: 1 WEEK
     Route: 048
  2. DEPAKENE [Suspect]
     Indication: PRODUCT USED FOR UNKNOWN INDICATION
     Dosage: DURATION OF USE: 1 WEEK
     Route: 048
  3. CYMBALTA [Suspect]
     Indication: DEPRESSION
     Dosage: DURATION OF USE: SEVERAL MONTHS
     Route: 048
  4. COTENOLOL [Suspect]
     Indication: PRODUCT USED FOR UNKNOWN INDICATION
     Route: 048
  5. TRYPTIZOL [Suspect]
     Indication: DEPRESSION
     Dosage: DURATION OF USE: SEVERAL MONTHS
     Route: 048
  6. ZOLPIDEM [Concomitant]
     Route: 048

REACTIONS (5)
  - BRADYPHRENIA [None]
  - CONFUSIONAL STATE [None]
  - HYPOKALAEMIA [None]
  - HYPONATRAEMIA [None]
  - INAPPROPRIATE ANTIDIURETIC HORMONE SECRETION [None]
